FAERS Safety Report 5845940-1 (Version None)
Quarter: 2008Q3

REPORT INFORMATION
  Report Type: 
  Country: None (occurrence: None)
  Receive Date: 20080814
  Receipt Date: 20080808
  Transmission Date: 20090109
  Serious: Yes (Life-Threatening, Other)
  Sender: FDA-Public Use
  Company Number: US-BAXTER-2008BH002615

PATIENT
  Age: 35 Year
  Sex: Female
  Weight: 72 kg

DRUGS (14)
  1. HEPARIN SODIUM INJECTION [Suspect]
     Indication: CYSTITIS INTERSTITIAL
     Route: 043
     Dates: start: 20030301, end: 20060101
  2. HEPARIN SODIUM INJECTION [Suspect]
     Route: 043
     Dates: start: 20060101, end: 20060101
  3. HEPARIN SODIUM INJECTION [Suspect]
     Route: 043
     Dates: start: 20080221, end: 20080221
  4. MARCAINE [Concomitant]
     Indication: CYSTITIS INTERSTITIAL
     Route: 043
     Dates: start: 20030101
  5. SOLU-CORTEF [Concomitant]
     Indication: CYSTITIS INTERSTITIAL
     Route: 043
     Dates: start: 20030101
  6. SODIUM BICARBONATE [Concomitant]
     Indication: CYSTITIS INTERSTITIAL
     Route: 043
     Dates: start: 20030101
  7. HYDROXYZINE [Concomitant]
     Indication: DRUG USE FOR UNKNOWN INDICATION
     Route: 048
  8. ELMIRON [Concomitant]
     Indication: CYSTITIS INTERSTITIAL
     Dosage: DOSE UNIT:UNKNOWN
     Route: 048
  9. INDERAL [Concomitant]
     Indication: MITRAL VALVE PROLAPSE
     Route: 048
  10. RELPAX [Concomitant]
     Indication: MIGRAINE
     Route: 048
  11. KLONOPIN [Concomitant]
     Indication: DRUG USE FOR UNKNOWN INDICATION
     Dosage: DOSE UNIT:UNKNOWN
     Route: 048
  12. EPINEPHRINE [Concomitant]
     Indication: HYPERSENSITIVITY
     Dosage: DOSE UNIT:UNKNOWN
     Route: 065
  13. KEFZOL [Concomitant]
     Indication: CYSTITIS INTERSTITIAL
     Route: 065
  14. XYLOCAINE [Concomitant]
     Indication: DRUG USE FOR UNKNOWN INDICATION
     Dosage: DOSE UNIT:UNKNOWN
     Route: 065

REACTIONS (15)
  - ACTIVITIES OF DAILY LIVING IMPAIRED [None]
  - APHASIA [None]
  - ASTHENIA [None]
  - DIZZINESS [None]
  - DYSPNOEA [None]
  - HYPERSENSITIVITY [None]
  - HYPOAESTHESIA [None]
  - HYPOAESTHESIA ORAL [None]
  - HYPOTENSION [None]
  - JAW DISORDER [None]
  - NAUSEA [None]
  - PHARYNGEAL HYPOAESTHESIA [None]
  - PHARYNGEAL OEDEMA [None]
  - SWOLLEN TONGUE [None]
  - TONGUE DISORDER [None]
